FAERS Safety Report 24122388 (Version 1)
Quarter: 2024Q3

REPORT INFORMATION
  Report Type: Other
  Country: JP (occurrence: JP)
  Receive Date: 20240723
  Receipt Date: 20240723
  Transmission Date: 20241017
  Serious: Yes (Other)
  Sender: MALLINCKRODT
  Company Number: None

PATIENT
  Age: 2 Week
  Sex: Male
  Weight: 1 kg

DRUGS (2)
  1. OFIRMEV [Suspect]
     Active Substance: ACETAMINOPHEN
     Indication: Patent ductus arteriosus
     Route: 042
     Dates: start: 20240621, end: 20240623
  2. OFIRMEV [Suspect]
     Active Substance: ACETAMINOPHEN
     Indication: Cardiac failure

REACTIONS (2)
  - Cerebral ventricle dilatation [Unknown]
  - Off label use [Unknown]

NARRATIVE: CASE EVENT DATE: 20240701
